FAERS Safety Report 25629368 (Version 1)
Quarter: 2025Q3

REPORT INFORMATION
  Report Type: Spontaneous
  Country: US (occurrence: US)
  Receive Date: 20250731
  Receipt Date: 20250731
  Transmission Date: 20251021
  Serious: No
  Sender: SANOFI AVENTIS
  Company Number: US-SA-2025SA222286

PATIENT
  Sex: Female
  Weight: 65.91 kg

DRUGS (4)
  1. DUPIXENT [Suspect]
     Active Substance: DUPILUMAB
     Indication: Nasal polyps
     Dosage: 300 MG, QOW
     Route: 058
  2. PREDNISONE [Concomitant]
     Active Substance: PREDNISONE
  3. GLYCERIN [Concomitant]
     Active Substance: GLYCERIN
  4. Chlorophyll [Concomitant]

REACTIONS (2)
  - Nasal polyps [Unknown]
  - Condition aggravated [Unknown]
